FAERS Safety Report 6671565-4 (Version None)
Quarter: 2010Q2

REPORT INFORMATION
  Report Type: 
  Country: None (occurrence: None)
  Receive Date: 20100407
  Receipt Date: 20100401
  Transmission Date: 20101027
  Serious: Yes (Hospitalization, Other)
  Sender: FDA-Public Use
  Company Number: AU-AMGEN-QUU390220

PATIENT
  Sex: Male
  Weight: 120 kg

DRUGS (9)
  1. NEUPOGEN [Suspect]
     Indication: NEUTROPENIA
     Route: 058
     Dates: start: 20100108, end: 20100114
  2. PERINDOPRIL ERBUMINE [Concomitant]
  3. OMEPRAZOLE [Concomitant]
  4. MULTI-VITAMINS [Concomitant]
  5. FISH OIL [Concomitant]
  6. THYROXIN [Concomitant]
  7. COLOXYL WITH SENNA [Concomitant]
  8. LACTULOSE [Concomitant]
     Dates: start: 20100110, end: 20100111
  9. OXYCONTIN [Concomitant]
     Dates: start: 20100113

REACTIONS (2)
  - BONE MARROW NECROSIS [None]
  - PAIN [None]
